FAERS Safety Report 23982074 (Version 1)
Quarter: 2024Q2

REPORT INFORMATION
  Report Type: Spontaneous
  Country: US (occurrence: US)
  Receive Date: 20240617
  Receipt Date: 20240617
  Transmission Date: 20240716
  Serious: No
  Sender: FDA-Public Use
  Company Number: US-PFIZER INC-202400192088

PATIENT
  Age: 59 Year
  Sex: Female

DRUGS (3)
  1. TUKYSA [Suspect]
     Active Substance: TUCATINIB
     Dosage: TWO TABLETS (300MG) BY MOUTH TWICE DAILY
     Route: 048
  2. CAPECITABINE [Concomitant]
     Active Substance: CAPECITABINE
  3. HERCEPTIN [Concomitant]
     Active Substance: TRASTUZUMAB

REACTIONS (1)
  - Attention deficit hyperactivity disorder [Not Recovered/Not Resolved]
